FAERS Safety Report 9059601 (Version 1)
Quarter: 2013Q1

REPORT INFORMATION
  Report Type: Spontaneous
  Country: US (occurrence: None)
  Receive Date: 20130206
  Receipt Date: 20130206
  Transmission Date: 20140127
  Serious: Yes (Hospitalization)
  Sender: FDA-Public Use
  Company Number: None

PATIENT
  Age: 57 Year
  Sex: Female
  Weight: 51.4 kg

DRUGS (1)
  1. IFOSFAMIDE [Suspect]
     Indication: BURKITT^S LYMPHOMA
     Dosage: 1500MG/M2  DAILY X5  IV
     Route: 042
     Dates: start: 20120222, end: 20120226

REACTIONS (6)
  - Mental status changes [None]
  - Neurotoxicity [None]
  - Multi-organ failure [None]
  - Febrile neutropenia [None]
  - Burkitt^s lymphoma [None]
  - Malignant neoplasm progression [None]
